FAERS Safety Report 8762543 (Version 1)
Quarter: 2012Q4

REPORT INFORMATION
  Report Type: 
  Country: US (occurrence: US)
  Receive Date: 20120829
  Receipt Date: 20120829
  Transmission Date: 20130627
  Serious: No
  Sender: FDA-Public Use
  Company Number: US-PFIZER INC-2012208751

PATIENT
  Sex: Male

DRUGS (2)
  1. ADVIL PM [Suspect]
     Indication: SLEEP DISORDER
     Dosage: UNK
     Route: 048
  2. ADVIL PM [Suspect]
     Dosage: 4 DF, UNK
     Route: 048
     Dates: start: 20120823

REACTIONS (4)
  - Overdose [Unknown]
  - Abdominal pain upper [Not Recovered/Not Resolved]
  - Pain [Not Recovered/Not Resolved]
  - Chest pain [Not Recovered/Not Resolved]
